FAERS Safety Report 15545500 (Version 3)
Quarter: 2019Q1

REPORT INFORMATION
  Report Type: Spontaneous
  Country: IT (occurrence: IT)
  Receive Date: 20181024
  Receipt Date: 20190120
  Transmission Date: 20190417
  Serious: Yes (Hospitalization, Other)
  Sender: FDA-Public Use
  Company Number: IT-AUROBINDO-AUR-APL-2018-049285

PATIENT
  Age: 87 Year
  Sex: Female

DRUGS (4)
  1. LEVOFLOXACIN. [Suspect]
     Active Substance: LEVOFLOXACIN
     Indication: ESCHERICHIA INFECTION
  2. LEVOFLOXACIN. [Suspect]
     Active Substance: LEVOFLOXACIN
     Indication: PROTEUS INFECTION
     Dosage: UNK
     Route: 065
  3. CIPROFLOXACIN. [Suspect]
     Active Substance: CIPROFLOXACIN
     Indication: ANTIBIOTIC THERAPY
     Dosage: 50 MG
     Route: 065
  4. CIPROFLOXACIN. [Suspect]
     Active Substance: CIPROFLOXACIN
     Dosage: 750 MG
     Route: 065

REACTIONS (4)
  - Cervical vertebral fracture [Unknown]
  - Prurigo [Unknown]
  - Hypersensitivity [Unknown]
  - Urticaria [Unknown]
